FAERS Safety Report 17017982 (Version 1)
Quarter: 2019Q4

REPORT INFORMATION
  Report Type: Spontaneous
  Country: NL (occurrence: NL)
  Receive Date: 20191111
  Receipt Date: 20191111
  Transmission Date: 20200122
  Serious: Yes (Other)
  Sender: FDA-Public Use
  Company Number: NL-BAUSCH-BL-2019-059796

PATIENT
  Age: 7 Year
  Sex: Male

DRUGS (16)
  1. CILASTATIN/IMIPENEM [Concomitant]
     Active Substance: CILASTATIN SODIUM\IMIPENEM
     Indication: MASTOIDITIS
     Dosage: 5/5 MG/ML, MEAN DURATION 6 WEEKS, RANGE 4-7 WEEKS
     Route: 061
  2. TIGECYCLINE. [Concomitant]
     Active Substance: TIGECYCLINE
     Indication: MASTOIDITIS
  3. TIGECYCLINE. [Concomitant]
     Active Substance: TIGECYCLINE
     Indication: MASTOIDITIS
  4. GRANISETRON [Concomitant]
     Active Substance: GRANISETRON
     Indication: VOMITING
  5. CLOFAZIMINE [Concomitant]
     Active Substance: CLOFAZIMINE
     Indication: MYCOBACTERIUM ABSCESSUS INFECTION
     Dosage: RESTARTED (CONTINUATION PHASE OF THREE MONTHS)
     Route: 048
  6. TIGECYCLINE. [Concomitant]
     Active Substance: TIGECYCLINE
     Indication: MYCOBACTERIUM ABSCESSUS INFECTION
     Dosage: MEAN DURATION 6 WEEKS, RANGE 4-7 WEEKS
     Route: 061
  7. CILASTATIN/IMIPENEM [Concomitant]
     Active Substance: CILASTATIN SODIUM\IMIPENEM
     Indication: MYCOBACTERIUM ABSCESSUS INFECTION
  8. AZITHROMYCIN ANHYDROUS. [Concomitant]
     Active Substance: AZITHROMYCIN ANHYDROUS
     Indication: MYCOBACTERIUM ABSCESSUS INFECTION
     Dosage: (CONTINUATION PHASE OF THREE MONTHS)
     Route: 048
  9. TIGECYCLINE. [Concomitant]
     Active Substance: TIGECYCLINE
     Indication: MYCOBACTERIUM ABSCESSUS INFECTION
     Dosage: IN 2 DOSES, INTENSIVE PHASE
     Route: 042
  10. CLOFAZIMINE [Concomitant]
     Active Substance: CLOFAZIMINE
     Indication: MASTOIDITIS
     Dosage: IF WEIGHT GREATER THAN 40KG, THEN 100MG ONCE DAILY
     Route: 048
  11. AZITHROMYCIN ANHYDROUS. [Concomitant]
     Active Substance: AZITHROMYCIN ANHYDROUS
     Indication: MASTOIDITIS
     Route: 048
  12. CILASTATIN/IMIPENEM [Concomitant]
     Active Substance: CILASTATIN SODIUM\IMIPENEM
     Indication: MASTOIDITIS
     Dosage: 60/60 MG/KG/DAY IN 2-4 DOSES, INTENSIVE PHASE
     Route: 042
  13. CILASTATIN/IMIPENEM [Concomitant]
     Active Substance: CILASTATIN SODIUM\IMIPENEM
     Indication: MYCOBACTERIUM ABSCESSUS INFECTION
  14. DEXAMETHASONE. [Suspect]
     Active Substance: DEXAMETHASONE
     Indication: VOMITING
  15. GRANISETRON [Concomitant]
     Active Substance: GRANISETRON
     Indication: VOMITING
  16. DEXAMETHASONE. [Suspect]
     Active Substance: DEXAMETHASONE
     Indication: NAUSEA
     Route: 065

REACTIONS (2)
  - Glucocorticoid deficiency [Recovered/Resolved]
  - Weight increased [Recovered/Resolved]
